FAERS Safety Report 8847828 (Version 2)
Quarter: 2012Q4

REPORT INFORMATION
  Report Type: 
  Country: BR (occurrence: BR)
  Receive Date: 20121018
  Receipt Date: 20121030
  Transmission Date: 20130627
  Serious: Yes (Other)
  Sender: FDA-Public Use
  Company Number: BR-JNJFOC-20121007025

PATIENT
  Sex: Male

DRUGS (2)
  1. REMICADE [Suspect]
     Indication: ANKYLOSING SPONDYLITIS
     Dosage: 15 days after the 1st infusion
     Route: 042
     Dates: start: 2012
  2. REMICADE [Suspect]
     Indication: ANKYLOSING SPONDYLITIS
     Dosage: 1st infusion
     Route: 042
     Dates: start: 2012

REACTIONS (2)
  - Calculus urinary [Unknown]
  - Weight decreased [Unknown]
